FAERS Safety Report 7029716-8 (Version None)
Quarter: 2010Q4

REPORT INFORMATION
  Report Type: 
  Country: None (occurrence: None)
  Receive Date: 20101005
  Receipt Date: 20101005
  Transmission Date: 20110411
  Serious: No
  Sender: FDA-Public Use
  Company Number: None

PATIENT
  Age: 12 Month
  Sex: Female
  Weight: 70.3075 kg

DRUGS (1)
  1. DHE IV? DONT KNOW DOSEAGE  ? [Suspect]
     Indication: MIGRAINE
     Dosage: ONE TIME IV
     Route: 042

REACTIONS (3)
  - DRUG INTERACTION [None]
  - SEROTONIN SYNDROME [None]
  - VOMITING [None]
